FAERS Safety Report 5501120-0 (Version None)
Quarter: 2007Q4

REPORT INFORMATION
  Report Type: 
  Country: None (occurrence: None)
  Receive Date: 20071029
  Receipt Date: 20071017
  Transmission Date: 20080405
  Serious: Yes (Hospitalization)
  Sender: FDA-Public Use
  Company Number: ES-PFIZER INC-2007086852

PATIENT
  Age: 83 Year
  Sex: Female

DRUGS (6)
  1. LYRICA [Suspect]
     Indication: TRIGEMINAL NEURALGIA
     Route: 048
     Dates: start: 20070722, end: 20070722
  2. ENALAPRIL MALEATE [Concomitant]
  3. OMEPRAZOLE [Concomitant]
  4. VITAMIN B-12 [Concomitant]
  5. CARBAMAZEPINE [Concomitant]
  6. PRAVASTATIN [Concomitant]

REACTIONS (5)
  - ASTHENIA [None]
  - ATRIOVENTRICULAR BLOCK COMPLETE [None]
  - BRADYCARDIA [None]
  - DISORIENTATION [None]
  - DYSARTHRIA [None]
